FAERS Safety Report 8777812 (Version 2)
Quarter: 2012Q4

REPORT INFORMATION
  Report Type: 
  Country: AU (occurrence: AU)
  Receive Date: 20120912
  Receipt Date: 20120912
  Transmission Date: 20130627
  Serious: Yes (Death, Hospitalization, Other)
  Sender: FDA-Public Use
  Company Number: PHHY2012AU071062

PATIENT
  Sex: Female

DRUGS (1)
  1. CLOZARIL [Suspect]
     Dosage: 175 mg, UNK
     Route: 048
     Dates: start: 20081127

REACTIONS (3)
  - Death [Fatal]
  - Lung infection [Unknown]
  - Diabetes mellitus [Unknown]
